FAERS Safety Report 17723684 (Version 2)
Quarter: 2020Q3

REPORT INFORMATION
  Report Type: Spontaneous
  Country: US (occurrence: US)
  Receive Date: 20200429
  Receipt Date: 20200807
  Transmission Date: 20201102
  Serious: Yes (Hospitalization, Other)
  Sender: FDA-Public Use
  Company Number: US-SA-2020SA110477

PATIENT

DRUGS (1)
  1. DUPIXENT [Suspect]
     Active Substance: DUPILUMAB
     Indication: ASTHMA
     Dosage: 300 MG, QOW
     Route: 058

REACTIONS (5)
  - Oedema peripheral [Unknown]
  - Lethargy [Unknown]
  - Hospitalisation [Recovering/Resolving]
  - Blood pressure increased [Unknown]
  - Breast cancer [Unknown]
